FAERS Safety Report 14275656 (Version 2)
Quarter: 2017Q4

REPORT INFORMATION
  Report Type: Spontaneous
  Country: CN (occurrence: CN)
  Receive Date: 20171211
  Receipt Date: 20171214
  Transmission Date: 20180321
  Serious: Yes (Other)
  Sender: FDA-Public Use
  Company Number: CN-009507513-1712CHN001127

PATIENT
  Age: 40 Year
  Sex: Female
  Weight: 73 kg

DRUGS (1)
  1. TIENAM [Suspect]
     Active Substance: CILASTATIN SODIUM\IMIPENEM
     Indication: INFECTION
     Dosage: 1 G, BID
     Route: 041
     Dates: start: 20170910, end: 20170910

REACTIONS (2)
  - Musculoskeletal stiffness [Recovering/Resolving]
  - Chest discomfort [Recovering/Resolving]

NARRATIVE: CASE EVENT DATE: 20170910
